FAERS Safety Report 6790620-1 (Version None)
Quarter: 2010Q2

REPORT INFORMATION
  Report Type: 
  Country: None (occurrence: None)
  Receive Date: 20100520
  Receipt Date: 20090331
  Transmission Date: 20101027
  Serious: Yes (Other)
  Sender: FDA-Public Use
  Company Number: 2009192258

PATIENT
  Age: 57 Year
  Sex: Female
  Weight: 95 kg

DRUGS (6)
  1. PROVERA [Suspect]
     Indication: HORMONE REPLACEMENT THERAPY
     Dosage: 2.5 MG
     Dates: start: 19940101, end: 19990101
  2. PROVERA [Suspect]
     Indication: MENOPAUSE
     Dosage: 2.5 MG
     Dates: start: 19940101, end: 19990101
  3. ESTRACE [Suspect]
     Indication: HORMONE REPLACEMENT THERAPY
     Dosage: 1 MG
     Dates: start: 19940101, end: 19990101
  4. ESTRACE [Suspect]
     Indication: MENOPAUSE
     Dosage: 1 MG
     Dates: start: 19940101, end: 19990101
  5. PREMPRO [Suspect]
     Indication: HORMONE REPLACEMENT THERAPY
  6. PREMPRO [Suspect]
     Indication: MENOPAUSE

REACTIONS (1)
  - BREAST CANCER [None]
